FAERS Safety Report 6012872-8 (Version None)
Quarter: 2008Q4

REPORT INFORMATION
  Report Type: 
  Country: None (occurrence: None)
  Receive Date: 20081217
  Receipt Date: 20081209
  Transmission Date: 20090506
  Serious: Yes (Other)
  Sender: FDA-Public Use
  Company Number: 20715

PATIENT
  Age: 55 Year
  Sex: Female
  Weight: 50.8029 kg

DRUGS (5)
  1. PACLITAXEL [Suspect]
     Indication: LUNG NEOPLASM MALIGNANT
     Dosage: 80 MG WEEKLY IV
     Route: 042
     Dates: start: 20081125, end: 20081125
  2. ALOXI [Concomitant]
  3. DECADRON [Concomitant]
  4. BENADRYL [Concomitant]
  5. ZANTAC [Concomitant]

REACTIONS (7)
  - BLOOD PRESSURE INCREASED [None]
  - CHEST DISCOMFORT [None]
  - CONVULSION [None]
  - DISORIENTATION [None]
  - DYSPNOEA [None]
  - PERIPHERAL COLDNESS [None]
  - TACHYCARDIA [None]
